FAERS Safety Report 17028407 (Version 1)
Quarter: 2019Q4

REPORT INFORMATION
  Report Type: Spontaneous
  Country: US (occurrence: US)
  Receive Date: 20191010
  Receipt Date: 20191010
  Transmission Date: 20200122
  Serious: No
  Sender: FDA-Public Use
  Company Number: None

PATIENT
  Age: 91 Year
  Sex: Male

DRUGS (1)
  1. ALYQ [Suspect]
     Active Substance: TADALAFIL
     Indication: PULMONARY ARTERIAL HYPERTENSION
     Route: 048
     Dates: start: 20190822

REACTIONS (4)
  - Pain in extremity [None]
  - Decreased appetite [None]
  - Therapy change [None]
  - Gait disturbance [None]

NARRATIVE: CASE EVENT DATE: 20190925
